FAERS Safety Report 5490061-3 (Version None)
Quarter: 2007Q4

REPORT INFORMATION
  Report Type: 
  Country: None (occurrence: None)
  Receive Date: 20071018
  Receipt Date: 20071008
  Transmission Date: 20080405
  Serious: Yes (Hospitalization)
  Sender: FDA-Public Use
  Company Number: US-ELI_LILLY_AND_COMPANY-US200710002147

PATIENT
  Age: 67 Year
  Sex: Female

DRUGS (8)
  1. CYMBALTA [Suspect]
     Indication: DEPRESSION
     Dosage: 30 MG, 2/D
  2. ALBUTEROL [Concomitant]
  3. KLONOPIN [Concomitant]
  4. LIDODERM [Concomitant]
  5. OXYCODONE HCL [Concomitant]
  6. PERCOCET [Concomitant]
  7. TRAZODONE HCL [Concomitant]
  8. POLYETHYLENE GLYCOL [Concomitant]

REACTIONS (2)
  - DYSPHAGIA [None]
  - SURGERY [None]
